FAERS Safety Report 7058626-5 (Version None)
Quarter: 2010Q4

REPORT INFORMATION
  Report Type: 
  Country: None (occurrence: None)
  Receive Date: 20101022
  Receipt Date: 20101014
  Transmission Date: 20110411
  Serious: Yes (Hospitalization)
  Sender: FDA-Public Use
  Company Number: B0679356A

PATIENT
  Sex: Female

DRUGS (7)
  1. ARIXTRA [Suspect]
     Indication: THROMBOSIS PROPHYLAXIS
     Dosage: 2.5MG IN THE MORNING
     Route: 058
     Dates: start: 20100826, end: 20100904
  2. KARDEGIC [Suspect]
     Indication: PRODUCT USED FOR UNKNOWN INDICATION
     Dosage: 75MG PER DAY
     Route: 048
     Dates: end: 20100904
  3. HYZAAR [Concomitant]
     Route: 065
     Dates: end: 20100905
  4. AMLODIPINE [Concomitant]
     Route: 065
  5. BISOPROLOL FUMARATE [Concomitant]
     Route: 065
  6. PRAVASTATIN [Concomitant]
     Route: 065
  7. IXPRIM [Concomitant]
     Route: 065

REACTIONS (6)
  - DIZZINESS [None]
  - GASTRIC ULCER [None]
  - HAEMATEMESIS [None]
  - HYPERHIDROSIS [None]
  - MELAENA [None]
  - NORMOCHROMIC NORMOCYTIC ANAEMIA [None]
